FAERS Safety Report 23771857 (Version 3)
Quarter: 2024Q3

REPORT INFORMATION
  Report Type: Spontaneous
  Country: FR (occurrence: FR)
  Receive Date: 20240423
  Receipt Date: 20240701
  Transmission Date: 20241016
  Serious: Yes (Other)
  Sender: JOHNSON AND JOHNSON
  Company Number: FR-JNJFOC-20240432877

PATIENT
  Age: 69 Year
  Sex: Female

DRUGS (3)
  1. TREMFYA [Suspect]
     Active Substance: GUSELKUMAB
     Indication: Spondylitis
     Route: 065
     Dates: start: 20231227
  2. TREMFYA [Suspect]
     Active Substance: GUSELKUMAB
     Route: 065
     Dates: start: 20240213
  3. TREMFYA [Suspect]
     Active Substance: GUSELKUMAB
     Route: 065
     Dates: start: 20240409

REACTIONS (32)
  - Pain [Recovering/Resolving]
  - Hypokinesia [Unknown]
  - Abdominal distension [Unknown]
  - Abdominal pain [Unknown]
  - Nausea [Unknown]
  - Decreased appetite [Unknown]
  - Skin disorder [Unknown]
  - Multiple allergies [Unknown]
  - Pruritus [Unknown]
  - Spondylitis [Unknown]
  - Diarrhoea [Unknown]
  - Weight increased [Unknown]
  - Balance disorder [Unknown]
  - Arthralgia [Unknown]
  - Dysuria [Unknown]
  - Gingival bleeding [Unknown]
  - Decreased immune responsiveness [Unknown]
  - Hordeolum [Recovered/Resolved]
  - Dyspnoea [Unknown]
  - Pulpitis dental [Unknown]
  - Psoriasis [Not Recovered/Not Resolved]
  - Drug ineffective [Unknown]
  - Herpes virus infection [Unknown]
  - Myalgia [Unknown]
  - Fatigue [Unknown]
  - Disturbance in attention [Unknown]
  - Toothache [Unknown]
  - Headache [Unknown]
  - Burning sensation [Unknown]
  - Noninfective gingivitis [Unknown]
  - Sleep disorder [Unknown]
  - Feeling cold [Unknown]

NARRATIVE: CASE EVENT DATE: 20240116
